FAERS Safety Report 7554910-7 (Version None)
Quarter: 2011Q2

REPORT INFORMATION
  Report Type: 
  Country: None (occurrence: None)
  Receive Date: 20110617
  Receipt Date: 20110607
  Transmission Date: 20111010
  Serious: Yes (Hospitalization, Other)
  Sender: FDA-Public Use
  Company Number: US-ELI_LILLY_AND_COMPANY-US201106003415

PATIENT
  Age: 76 Year
  Sex: Female

DRUGS (2)
  1. SYNTHROID [Concomitant]
     Indication: THYROID DISORDER
     Dosage: UNK, UNKNOWN
     Route: 065
  2. HUMATROPE [Suspect]
     Indication: BLOOD GROWTH HORMONE
     Dosage: 3 CLICKS A DAY UNK, UNKNOWN
     Route: 065

REACTIONS (4)
  - PITUITARY TUMOUR [None]
  - MALAISE [None]
  - DRUG DOSE OMISSION [None]
  - MYOCARDIAL INFARCTION [None]
